FAERS Safety Report 23100155 (Version 10)
Quarter: 2024Q1

REPORT INFORMATION
  Report Type: Spontaneous
  Country: US (occurrence: US)
  Receive Date: 20231024
  Receipt Date: 20240202
  Transmission Date: 20240410
  Serious: No
  Sender: FDA-Public Use
  Company Number: US-PFIZER INC-202300316226

PATIENT
  Age: 7 Year
  Sex: Female
  Weight: 19.5 kg

DRUGS (6)
  1. GENOTROPIN [Suspect]
     Active Substance: SOMATROPIN
     Indication: Craniopharyngioma
     Dosage: 0.8 MG, DAILY (ADMINISTERED IN FLESHY PART BY HIP/BUTTOCKS)
  2. GENOTROPIN [Suspect]
     Active Substance: SOMATROPIN
     Indication: Growth hormone deficiency
     Dosage: 0.6 MG, DAILY
  3. HYDROCORTISONE [Concomitant]
     Active Substance: HYDROCORTISONE
     Indication: Adrenal disorder
     Dosage: 5 MG, 3X/DAY (5MG TABLETS, HALF TABLET (2.5MG) THREE TIMES A DAY; MORNING, AFTERNOON AND BEFORE BED)
     Route: 048
  4. DESMOPRESSIN [Concomitant]
     Active Substance: DESMOPRESSIN
     Indication: Diabetes insipidus
     Dosage: 1 MG, 4X/DAY (1MG TABLET, TWO IN MORNING AND TWO IN EVENING BEFORE BED)
     Route: 048
  5. SYNTHROID [Concomitant]
     Active Substance: LEVOTHYROXINE SODIUM
     Indication: Hypothyroidism
     Dosage: 88 UG, 1X/DAY (88MCG, HALF TABLET IN THE MORNING)
     Route: 048
  6. OMEPRAZOLE [Concomitant]
     Active Substance: OMEPRAZOLE
     Indication: Dyspepsia
     Dosage: 20 MG, 1X/DAY (ONCE A DAY IN THE MORNING)
     Route: 048

REACTIONS (5)
  - Drug dose omission by device [Unknown]
  - Device use error [Unknown]
  - Liquid product physical issue [Unknown]
  - Device physical property issue [Unknown]
  - Product solubility abnormal [Unknown]

NARRATIVE: CASE EVENT DATE: 20230930
